FAERS Safety Report 8786081 (Version 1)
Quarter: 2012Q4

REPORT INFORMATION
  Report Type: 
  Country: SE (occurrence: SE)
  Receive Date: 20120914
  Receipt Date: 20120914
  Transmission Date: 20130627
  Serious: Yes (Hospitalization)
  Sender: FDA-Public Use
  Company Number: SE-VALEANT-2012VX004200

PATIENT
  Age: 63 Year
  Sex: Female

DRUGS (9)
  1. MESTINON [Suspect]
     Indication: MYASTHENIA GRAVIS
     Route: 065
  2. MESTINON [Suspect]
     Indication: MYASTHENIA GRAVIS
     Route: 065
  3. MESTINON [Suspect]
     Indication: MYASTHENIA GRAVIS
     Route: 065
  4. SANDIMMUN NEORAL [Concomitant]
     Route: 065
  5. ENALAPRIL [Concomitant]
     Route: 065
  6. SIMVASTATIN [Concomitant]
     Route: 065
  7. TIMOSAN [Concomitant]
     Route: 065
  8. ALENDRONAT [Concomitant]
     Route: 065
  9. SOLU-MEDROL [Concomitant]
     Route: 065
     Dates: start: 20120621

REACTIONS (4)
  - Bradycardia [Unknown]
  - Incorrect dose administered [Unknown]
  - Supraventricular extrasystoles [Unknown]
  - Gastrointestinal disorder [Unknown]
